FAERS Safety Report 7298654-8 (Version None)
Quarter: 2011Q1

REPORT INFORMATION
  Report Type: 
  Country: None (occurrence: None)
  Receive Date: 20110207
  Receipt Date: 20110125
  Transmission Date: 20110831
  Serious: Yes (Death, Hospitalization)
  Sender: FDA-Public Use
  Company Number: KADN20110010

PATIENT
  Age: 51 Year
  Sex: Female

DRUGS (6)
  1. TAPAZOLE [Suspect]
     Indication: PRODUCT USED FOR UNKNOWN INDICATION
     Dosage: PER ORAL
     Route: 048
     Dates: end: 20090101
  2. MORPHINE [Suspect]
     Indication: PRODUCT USED FOR UNKNOWN INDICATION
     Dosage: PER ORAL
     Route: 048
     Dates: end: 20090101
  3. DIPHENHYDRAMINE HCL [Suspect]
     Indication: PRODUCT USED FOR UNKNOWN INDICATION
     Dosage: PER ORAL
     Route: 048
     Dates: end: 20090101
  4. SIMVASTATIN [Suspect]
     Indication: PRODUCT USED FOR UNKNOWN INDICATION
     Dosage: PER ORAL
     Route: 048
     Dates: end: 20090101
  5. SALICYLATE [Concomitant]
  6. MORPHINE [Suspect]
     Indication: PRODUCT USED FOR UNKNOWN INDICATION
     Dosage: PER ORAL
     Route: 048
     Dates: end: 20090101

REACTIONS (8)
  - BLOOD PH DECREASED [None]
  - VOMITING [None]
  - UNRESPONSIVE TO STIMULI [None]
  - HEART RATE INCREASED [None]
  - COMPLETED SUICIDE [None]
  - BLOOD PRESSURE DECREASED [None]
  - CONVULSION [None]
  - CARDIO-RESPIRATORY ARREST [None]
